APPROVED DRUG PRODUCT: ORTHO EVRA
Active Ingredient: ETHINYL ESTRADIOL; NORELGESTROMIN
Strength: 0.035MG/24HR;0.15MG/24HR **Federal Register determination that product was not discontinued or withdrawn for safety or effectiveness reasons**
Dosage Form/Route: FILM, EXTENDED RELEASE;TRANSDERMAL
Application: N021180 | Product #001
Applicant: JANSSEN PHARMACEUTICALS INC
Approved: Nov 20, 2001 | RLD: Yes | RS: No | Type: DISCN